FAERS Safety Report 24673448 (Version 1)
Quarter: 2024Q4

REPORT INFORMATION
  Report Type: Report from Study
  Country: CA (occurrence: CA)
  Receive Date: 20241128
  Receipt Date: 20241128
  Transmission Date: 20250115
  Serious: Yes (Other)
  Sender: SANDOZ
  Company Number: CA-SANDOZ-SDZ2024CA098088

PATIENT
  Sex: Male

DRUGS (1)
  1. HYRIMOZ [Suspect]
     Active Substance: ADALIMUMAB-ADAZ
     Indication: Psoriatic arthropathy
     Dosage: 40MG SC Q6SEMAINES
     Route: 058
     Dates: start: 20220328

REACTIONS (4)
  - Blood pressure increased [Unknown]
  - Iron deficiency [Unknown]
  - Pain in extremity [Unknown]
  - Off label use [Unknown]
